FAERS Safety Report 21755530 (Version 2)
Quarter: 2022Q4

REPORT INFORMATION
  Report Type: Report from Study
  Country: JP (occurrence: JP)
  Receive Date: 20221220
  Receipt Date: 20221220
  Transmission Date: 20230112
  Serious: Yes (Other)
  Sender: FDA-Public Use
  Company Number: JP-ONO-2022JP033450

PATIENT
  Age: 69 Year
  Sex: Male
  Weight: 64.6 kg

DRUGS (7)
  1. BRAFTOVI [Suspect]
     Active Substance: ENCORAFENIB
     Indication: Colon cancer
     Dosage: 300 MG, 1X/DAY (EVERY DAY)
     Route: 048
     Dates: start: 20211109, end: 20211123
  2. BRAFTOVI [Suspect]
     Active Substance: ENCORAFENIB
     Dosage: 200 MG, 1X/DAY (EVERY DAY)
     Route: 048
     Dates: start: 20211208, end: 20220601
  3. MEKTOVI [Suspect]
     Active Substance: BINIMETINIB
     Indication: Colon cancer
     Dosage: 90 MG, 1X/DAY (EVERY DAY)
     Route: 048
     Dates: start: 20211109, end: 20211123
  4. MEKTOVI [Suspect]
     Active Substance: BINIMETINIB
     Dosage: 60 MG, 1X/DAY (EVERY DAY)
     Route: 048
     Dates: start: 20211208, end: 20220601
  5. CETUXIMAB [Suspect]
     Active Substance: CETUXIMAB
     Indication: Colon cancer
     Dosage: 400 MG/M2
     Route: 065
     Dates: start: 20211109, end: 20211109
  6. CETUXIMAB [Suspect]
     Active Substance: CETUXIMAB
     Dosage: 250 MG/M2
     Route: 065
     Dates: start: 20211117, end: 20211117
  7. CETUXIMAB [Suspect]
     Active Substance: CETUXIMAB
     Dosage: 250 MG/M2
     Route: 065
     Dates: start: 20211208, end: 20220526

REACTIONS (5)
  - Serous retinal detachment [Recovering/Resolving]
  - Dry skin [Recovering/Resolving]
  - Paronychia [Recovering/Resolving]
  - Periodontitis [Recovered/Resolved]
  - Underdose [Unknown]

NARRATIVE: CASE EVENT DATE: 20211110
